FAERS Safety Report 7901001-9 (Version None)
Quarter: 2011Q4

REPORT INFORMATION
  Report Type: 
  Country: None (occurrence: None)
  Receive Date: 20111108
  Receipt Date: 20111101
  Transmission Date: 20120403
  Serious: Yes (Hospitalization, Other)
  Sender: FDA-Public Use
  Company Number: JP-PFIZER INC-2011154982

PATIENT
  Age: 39 Year
  Sex: Female
  Weight: 95 kg

DRUGS (17)
  1. ZOLPIDEM TARTRATE [Concomitant]
     Dosage: UNK
     Route: 048
     Dates: start: 20110715
  2. RISPERDAL [Concomitant]
     Dosage: 3 MG, 3X/DAY
     Route: 048
     Dates: start: 20110715
  3. EPERISONE HYDROCHLORIDE [Concomitant]
     Dosage: 50 MG, 3X/DAY
     Route: 048
     Dates: end: 20110705
  4. TRIAZOLAM [Concomitant]
     Dosage: 0.25 MG, 1X/DAY
     Route: 048
     Dates: end: 20110705
  5. ZOLPIDEM TARTRATE [Concomitant]
     Route: 048
  6. PHENOBARBITAL TAB [Concomitant]
     Dosage: 2 DF, 1X/DAY
     Route: 048
     Dates: end: 20110705
  7. QUAZEPAM [Concomitant]
     Dosage: 15 MG, 1X/DAY
     Route: 048
     Dates: end: 20110705
  8. ZITHROMAX [Suspect]
     Indication: UPPER RESPIRATORY TRACT INFLAMMATION
     Dosage: 2 G, 1X/DAY
     Route: 048
     Dates: start: 20110702
  9. LIPITOR [Concomitant]
     Indication: HYPERLIPIDAEMIA
     Dosage: 5 MG, 1X/DAY
     Route: 048
     Dates: end: 20110705
  10. RISPERDAL [Concomitant]
     Indication: SCHIZOPHRENIA
     Dosage: 3 MG, 3X/DAY
     Route: 048
     Dates: end: 20110705
  11. LORAZEPAM [Concomitant]
     Dosage: 0.5 MG, 1X/DAY
     Route: 048
     Dates: end: 20110705
  12. ZOLPIDEM [Concomitant]
     Dosage: 10 MG, 1X/DAY
     Route: 048
     Dates: start: 20110715
  13. ZYPREXA [Concomitant]
     Dosage: 20 MG, 1X/DAY
     Route: 048
     Dates: start: 20110715
  14. NIZATIDINE [Concomitant]
     Dosage: 150 MG, 1X/DAY
     Route: 048
     Dates: end: 20110705
  15. ZYPREXA [Concomitant]
     Indication: SCHIZOPHRENIA
     Dosage: 20 MG, 1X/DAY
     Route: 048
     Dates: end: 20110705
  16. FLUNITRAZEPAM [Concomitant]
     Dosage: 2 MG, 1X/DAY
     Route: 048
     Dates: end: 20110705
  17. ZOLPIDEM [Concomitant]
     Indication: INSOMNIA
     Dosage: 10 MG, 1X/DAY
     Route: 048
     Dates: end: 20110705

REACTIONS (5)
  - RHABDOMYOLYSIS [None]
  - RESPIRATORY TRACT OEDEMA [None]
  - HYPOVENTILATION [None]
  - BLISTER [None]
  - SKIN EROSION [None]
